FAERS Safety Report 5958055-9 (Version None)
Quarter: 2008Q4

REPORT INFORMATION
  Report Type: 
  Country: None (occurrence: None)
  Receive Date: 20081119
  Receipt Date: 20081112
  Transmission Date: 20090506
  Serious: Yes (Life-Threatening, Hospitalization, Disabling, Other)
  Sender: FDA-Public Use
  Company Number: A0754078A

PATIENT
  Age: 59 Year
  Sex: Male
  Weight: 64 kg

DRUGS (14)
  1. EPZICOM [Suspect]
     Indication: HIV INFECTION
     Dosage: 1TAB PER DAY
     Route: 048
  2. NORVIR [Concomitant]
     Indication: HIV INFECTION
     Dosage: 100MG PER DAY
     Route: 048
  3. INVIRASE [Concomitant]
     Indication: HIV INFECTION
     Dosage: 2000MG PER DAY
     Route: 048
  4. WELLBUTRIN [Concomitant]
     Indication: DEPRESSION
     Dosage: 200MG TWICE PER DAY
     Route: 048
  5. ASPIRIN [Concomitant]
     Dosage: 81MG PER DAY
     Route: 048
  6. FLOMAX [Concomitant]
     Indication: URINARY RETENTION
     Dosage: .4MG PER DAY
     Route: 048
  7. TESTOSTERONE [Concomitant]
     Dosage: 200MG WEEKLY
     Route: 058
  8. MORPHINE [Concomitant]
     Indication: PAIN
     Dosage: 60MG THREE TIMES PER DAY
  9. MULTI-VITAMINS [Concomitant]
     Indication: SUPPLEMENTATION THERAPY
     Dosage: 1TAB PER DAY
     Route: 048
  10. TRAMADOL HCL [Concomitant]
     Indication: PAIN
     Dosage: 50MG AS REQUIRED
     Route: 048
  11. PILOCARPINE [Concomitant]
     Indication: DRY MOUTH
     Dosage: 5MG AS REQUIRED
     Route: 048
  12. VITAMIN B-12 [Concomitant]
     Indication: SUPPLEMENTATION THERAPY
     Route: 048
  13. AMITIZA [Concomitant]
     Indication: CONSTIPATION
     Dosage: 24MCG AS REQUIRED
     Route: 048
  14. MIRTAZAPINE [Concomitant]
     Indication: DEPRESSION
     Dosage: 30MG AT NIGHT
     Route: 048

REACTIONS (14)
  - ANXIETY [None]
  - BLOOD PRESSURE INCREASED [None]
  - CHEST PAIN [None]
  - CHRONIC OBSTRUCTIVE PULMONARY DISEASE [None]
  - CORONARY ARTERY DISEASE [None]
  - COUGH [None]
  - DYSPNOEA [None]
  - EMPHYSEMA [None]
  - HYPERHIDROSIS [None]
  - HYPERSENSITIVITY [None]
  - ILL-DEFINED DISORDER [None]
  - NAUSEA [None]
  - RESPIRATORY DISTRESS [None]
  - WHITE BLOOD CELL COUNT INCREASED [None]
